FAERS Safety Report 17711315 (Version 3)
Quarter: 2021Q1

REPORT INFORMATION
  Report Type: Spontaneous
  Country: US (occurrence: US)
  Receive Date: 20200427
  Receipt Date: 20210316
  Transmission Date: 20210419
  Serious: Yes (Other)
  Sender: FDA-Public Use
  Company Number: US-PFIZER INC-2020166357

PATIENT
  Age: 66 Year
  Sex: Female
  Weight: 66.22 kg

DRUGS (1)
  1. XELJANZ [Suspect]
     Active Substance: TOFACITINIB CITRATE
     Indication: RHEUMATOID ARTHRITIS
     Dosage: 5 MG, 2X/DAY
     Route: 048
     Dates: end: 201910

REACTIONS (4)
  - Speech disorder [Unknown]
  - Arthritis infective [Unknown]
  - Localised infection [Unknown]
  - Pseudomonas infection [Unknown]
